FAERS Safety Report 7361283-1 (Version None)
Quarter: 2011Q1

REPORT INFORMATION
  Report Type: 
  Country: None (occurrence: None)
  Receive Date: 20110318
  Receipt Date: 20110311
  Transmission Date: 20110831
  Serious: Yes (Death, Disabling)
  Sender: FDA-Public Use
  Company Number: A0880825A

PATIENT
  Sex: Female

DRUGS (1)
  1. AVANDIA [Suspect]
     Indication: DIABETES MELLITUS
     Dosage: 8MG PER DAY
     Route: 048
     Dates: start: 20030101, end: 20070101

REACTIONS (9)
  - ASTHENIA [None]
  - ANHEDONIA [None]
  - DEATH [None]
  - INJURY [None]
  - CARDIOVASCULAR DISORDER [None]
  - ECONOMIC PROBLEM [None]
  - FEAR [None]
  - PAIN [None]
  - EMOTIONAL DISTRESS [None]
